FAERS Safety Report 26085953 (Version 2)
Quarter: 2025Q4

REPORT INFORMATION
  Report Type: Spontaneous
  Country: EU (occurrence: EU)
  Receive Date: 20251125
  Receipt Date: 20251209
  Transmission Date: 20260118
  Serious: No
  Sender: ABBVIE
  Company Number: EU-LIPOMED-20250141

PATIENT
  Age: 43 Year
  Sex: Male

DRUGS (3)
  1. VENETOCLAX [Suspect]
     Active Substance: VENETOCLAX
     Indication: T-cell prolymphocytic leukaemia
     Dosage: GRADUAL DOSE ESCALATION
     Route: 048
  2. CLADRIBINE [Concomitant]
     Active Substance: CLADRIBINE
     Indication: T-cell prolymphocytic leukaemia
     Route: 065
  3. ALEMTUZUMAB [Concomitant]
     Active Substance: ALEMTUZUMAB
     Indication: T-cell prolymphocytic leukaemia
     Dosage: GRADUAL DOSE ESCALATION TO 30 MG
     Route: 065

REACTIONS (1)
  - Off label use [Unknown]
